FAERS Safety Report 13591432 (Version 3)
Quarter: 2017Q2

REPORT INFORMATION
  Report Type: Spontaneous
  Country: US (occurrence: US)
  Receive Date: 20170529
  Receipt Date: 20170605
  Transmission Date: 20170830
  Serious: No
  Sender: FDA-Public Use
  Company Number: US-PFIZER INC-2017232931

PATIENT
  Sex: Male

DRUGS (2)
  1. LIPITOR [Concomitant]
     Active Substance: ATORVASTATIN CALCIUM
     Dosage: UNK
  2. LYRICA [Suspect]
     Active Substance: PREGABALIN
     Indication: NEUROPATHY PERIPHERAL
     Dosage: 300 MG PER DAY AT NIGHT

REACTIONS (10)
  - Cognitive disorder [Unknown]
  - Depression [Unknown]
  - Gout [Unknown]
  - Blood sodium decreased [Unknown]
  - Product use in unapproved indication [Unknown]
  - Anxiety [Unknown]
  - Weight decreased [Unknown]
  - Bedridden [Unknown]
  - Visual impairment [Unknown]
  - Hallucination [Unknown]
